FAERS Safety Report 4970873-2 (Version None)
Quarter: 2006Q2

REPORT INFORMATION
  Report Type: 
  Country: None (occurrence: None)
  Receive Date: 20060411
  Receipt Date: 20060411
  Transmission Date: 20061013
  Serious: Yes (Other)
  Sender: FDA-Public Use
  Company Number: None

PATIENT
  Age: 70 Year
  Sex: Male
  Weight: 89.4 kg

DRUGS (1)
  1. AMANTADINE HCL [Suspect]

REACTIONS (1)
  - DIZZINESS [None]
